FAERS Safety Report 26176038 (Version 1)
Quarter: 2025Q4

REPORT INFORMATION
  Report Type: Spontaneous
  Country: EU (occurrence: EU)
  Receive Date: 20251218
  Receipt Date: 20251218
  Transmission Date: 20260118
  Serious: Yes (Other)
  Sender: MYLAN
  Company Number: None

PATIENT
  Age: 32 Year
  Sex: Female
  Weight: 90 kg

DRUGS (8)
  1. KETOPROFEN [Suspect]
     Active Substance: KETOPROFEN
     Indication: Product used for unknown indication
     Dosage: 300 MILLIGRAM, TOTAL
     Route: 061
     Dates: start: 20251125, end: 20251125
  2. KETOPROFEN [Suspect]
     Active Substance: KETOPROFEN
     Dosage: 300 MILLIGRAM, TOTAL
     Route: 048
     Dates: start: 20251125, end: 20251125
  3. KETOPROFEN [Suspect]
     Active Substance: KETOPROFEN
     Dosage: 300 MILLIGRAM, TOTAL
     Route: 048
     Dates: start: 20251125, end: 20251125
  4. KETOPROFEN [Suspect]
     Active Substance: KETOPROFEN
     Dosage: 300 MILLIGRAM, TOTAL
     Route: 061
     Dates: start: 20251125, end: 20251125
  5. ACETAMINOPHEN [Suspect]
     Active Substance: ACETAMINOPHEN
     Indication: Product used for unknown indication
     Dosage: 2 GRAM, TOTAL
     Route: 061
     Dates: start: 20251125, end: 20251125
  6. ACETAMINOPHEN [Suspect]
     Active Substance: ACETAMINOPHEN
     Dosage: 2 GRAM, TOTAL
     Route: 048
     Dates: start: 20251125, end: 20251125
  7. ACETAMINOPHEN [Suspect]
     Active Substance: ACETAMINOPHEN
     Dosage: 2 GRAM, TOTAL
     Route: 048
     Dates: start: 20251125, end: 20251125
  8. ACETAMINOPHEN [Suspect]
     Active Substance: ACETAMINOPHEN
     Dosage: 2 GRAM, TOTAL
     Route: 061
     Dates: start: 20251125, end: 20251125

REACTIONS (3)
  - Nausea [Recovering/Resolving]
  - Paraesthesia [Recovering/Resolving]
  - Incorrect dose administered [Recovered/Resolved]

NARRATIVE: CASE EVENT DATE: 20251125
